FAERS Safety Report 12635779 (Version 2)
Quarter: 2016Q3

REPORT INFORMATION
  Report Type: Spontaneous
  Country: US (occurrence: US)
  Receive Date: 20160809
  Receipt Date: 20160926
  Transmission Date: 20161109
  Serious: No
  Sender: FDA-Public Use
  Company Number: US-PFIZER INC-2016370994

PATIENT
  Age: 57 Year
  Sex: Male

DRUGS (1)
  1. ZOLOFT [Suspect]
     Active Substance: SERTRALINE HYDROCHLORIDE
     Indication: ASTHENIA
     Dosage: UNK

REACTIONS (2)
  - Somnolence [Recovered/Resolved]
  - Feeling abnormal [Recovered/Resolved]
